FAERS Safety Report 21636842 (Version 2)
Quarter: 2022Q4

REPORT INFORMATION
  Report Type: Spontaneous
  Country: US (occurrence: US)
  Receive Date: 20221124
  Receipt Date: 20221124
  Transmission Date: 20230112
  Serious: No
  Sender: FDA-Public Use
  Company Number: US-BIOGEN-2022BI01169594

PATIENT
  Age: 30 Year
  Sex: Female

DRUGS (2)
  1. VUMERITY [Suspect]
     Active Substance: DIROXIMEL FUMARATE
     Indication: Multiple sclerosis
     Dosage: ONE EVERY OTHER DAY
     Route: 050
     Dates: start: 20221021
  2. VUMERITY [Suspect]
     Active Substance: DIROXIMEL FUMARATE
     Route: 050
     Dates: start: 20221113, end: 20221113

REACTIONS (18)
  - Headache [Recovered/Resolved]
  - Dry mouth [Recovered/Resolved]
  - Body temperature increased [Recovered/Resolved]
  - Abdominal discomfort [Recovered/Resolved]
  - Paraesthesia [Recovered/Resolved]
  - Nasopharyngitis [Recovered/Resolved]
  - Neck pain [Recovered/Resolved]
  - Dizziness [Recovered/Resolved]
  - Pyrexia [Recovered/Resolved]
  - Chills [Recovered/Resolved]
  - Pain in extremity [Recovered/Resolved]
  - Motor dysfunction [Recovered/Resolved]
  - Pain in jaw [Recovered/Resolved]
  - Pharyngeal swelling [Recovered/Resolved]
  - Nausea [Recovered/Resolved]
  - Swollen tongue [Recovered/Resolved]
  - Burning sensation [Recovered/Resolved]
  - Abdominal pain [Recovered/Resolved]

NARRATIVE: CASE EVENT DATE: 20221113
